FAERS Safety Report 5846998-6 (Version None)
Quarter: 2008Q3

REPORT INFORMATION
  Report Type: 
  Country: None (occurrence: None)
  Receive Date: 20080815
  Receipt Date: 20080806
  Transmission Date: 20090109
  Serious: Yes (Other)
  Sender: FDA-Public Use
  Company Number: US-JNJFOC-20080802155

PATIENT
  Age: 60 Year
  Sex: Female

DRUGS (1)
  1. INVEGA [Suspect]
     Indication: PARANOIA
     Route: 048

REACTIONS (1)
  - TARDIVE DYSKINESIA [None]
